FAERS Safety Report 9335238 (Version 2)
Quarter: 2013Q2

REPORT INFORMATION
  Report Type: Report from Study
  Country: ES (occurrence: ES)
  Receive Date: 20130606
  Receipt Date: 20130614
  Transmission Date: 20140414
  Serious: Yes (Other)
  Sender: FDA-Public Use
  Company Number: ES-GLAXOSMITHKLINE-Z0019310A

PATIENT
  Age: 52 Year
  Sex: Female
  Weight: 55.2 kg

DRUGS (2)
  1. DABRAFENIB [Suspect]
     Indication: MALIGNANT MELANOMA
     Dosage: 150MG TWICE PER DAY
     Route: 048
     Dates: start: 20130222
  2. TRAMETINIB [Suspect]
     Indication: MALIGNANT MELANOMA
     Dosage: 2MG PER DAY
     Route: 048
     Dates: start: 20130222

REACTIONS (1)
  - Hypertransaminasaemia [Recovered/Resolved]
